FAERS Safety Report 8776314 (Version 2)
Quarter: 2013Q1

REPORT INFORMATION
  Report Type: Spontaneous
  Country: AU (occurrence: AU)
  Receive Date: 20120910
  Receipt Date: 20130201
  Transmission Date: 20140127
  Serious: Yes (Other)
  Sender: FDA-Public Use
  Company Number: AU-JNJFOC-20120900565

PATIENT
  Sex: Female
  Weight: 80 kg

DRUGS (1)
  1. INVEGA SUSTENNA [Suspect]
     Indication: SCHIZOAFFECTIVE DISORDER
     Route: 030

REACTIONS (8)
  - Mania [Unknown]
  - Insomnia [Not Recovered/Not Resolved]
  - Tooth disorder [Unknown]
  - Memory impairment [Unknown]
  - Dyspnoea [Unknown]
  - Local swelling [Unknown]
  - Bone pain [Unknown]
  - Pruritus [Unknown]
